FAERS Safety Report 7475150-6 (Version None)
Quarter: 2011Q2

REPORT INFORMATION
  Report Type: 
  Country: None (occurrence: None)
  Receive Date: 20110512
  Receipt Date: 20110503
  Transmission Date: 20111010
  Serious: Yes (Hospitalization)
  Sender: FDA-Public Use
  Company Number: ES-BRISTOL-MYERS SQUIBB COMPANY-15631732

PATIENT
  Age: 77 Year
  Sex: Male

DRUGS (1)
  1. NYSTATIN [Suspect]
     Indication: FUNGAL INFECTION
     Dosage: FOR 5 DAYS, 5 ML/8H.
     Route: 048
     Dates: start: 20110218, end: 20110222

REACTIONS (5)
  - HYPERPARATHYROIDISM [None]
  - VITAMIN D DEFICIENCY [None]
  - PEPTIC ULCER [None]
  - ORAL PAIN [None]
  - OESOPHAGITIS [None]
